FAERS Safety Report 18809920 (Version 1)
Quarter: 2021Q1

REPORT INFORMATION
  Report Type: Spontaneous
  Country: US (occurrence: US)
  Receive Date: 20210129
  Receipt Date: 20210129
  Transmission Date: 20210419
  Serious: No
  Sender: FDA-Public Use
  Company Number: US-009507513-2101USA010529

PATIENT
  Age: 70 Year
  Sex: Female

DRUGS (4)
  1. AMPHOTERICIN B. [Concomitant]
     Active Substance: AMPHOTERICIN B
     Indication: SINUSITIS FUNGAL
  2. NOXAFIL [Suspect]
     Active Substance: POSACONAZOLE
     Indication: SINUSITIS FUNGAL
  3. GLATIRAMER ACETATE. [Concomitant]
     Active Substance: GLATIRAMER ACETATE
     Indication: MULTIPLE SCLEROSIS
  4. AMPHOTERICIN B. [Concomitant]
     Active Substance: AMPHOTERICIN B
     Indication: SINUSITIS FUNGAL

REACTIONS (1)
  - Product use in unapproved indication [Unknown]
